FAERS Safety Report 17236942 (Version 2)
Quarter: 2020Q1

REPORT INFORMATION
  Report Type: Spontaneous
  Country: US (occurrence: US)
  Receive Date: 20200106
  Receipt Date: 20200120
  Transmission Date: 20200409
  Serious: No
  Sender: FDA-Public Use
  Company Number: US-TEVA-2019-US-1162466

PATIENT
  Sex: Male

DRUGS (1)
  1. TESTOSTERONE 1% GEL [Suspect]
     Active Substance: TESTOSTERONE
     Indication: HYPOGONADISM
     Dosage: TESTOSTERONE GEL 1% 5G X 30 TUBE
     Route: 065

REACTIONS (2)
  - Malabsorption from application site [Unknown]
  - Drug ineffective [Unknown]
